FAERS Safety Report 7464837-7 (Version None)
Quarter: 2011Q2

REPORT INFORMATION
  Report Type: 
  Country: None (occurrence: None)
  Receive Date: 20110428
  Receipt Date: 20110420
  Transmission Date: 20111010
  Serious: Yes (Other)
  Sender: FDA-Public Use
  Company Number: DSA_45168_2011

PATIENT
  Sex: Male
  Weight: 81.1939 kg

DRUGS (12)
  1. NAMENDA [Concomitant]
  2. ARICEPT [Concomitant]
  3. DEPAKENE [Concomitant]
  4. XENAZINE [Suspect]
     Indication: HUNTINGTON'S DISEASE
     Dosage: 25 MG TID, ORAL
     Route: 048
     Dates: start: 20081216
  5. RESTORIL [Concomitant]
  6. RISPERDAL [Concomitant]
  7. EFFEXOR XR [Concomitant]
  8. DETROL LA [Concomitant]
  9. NEXIUM [Concomitant]
  10. HYDROCHLOROTHIAZIDE [Concomitant]
  11. LORAZEPAM [Concomitant]
  12. BACLOFEN [Concomitant]

REACTIONS (33)
  - DYSPHONIA [None]
  - CEREBELLAR SYNDROME [None]
  - GAIT DISTURBANCE [None]
  - NAUSEA [None]
  - ANXIETY [None]
  - BALANCE DISORDER [None]
  - SCREAMING [None]
  - MUSCLE SPASMS [None]
  - FALL [None]
  - AGGRESSION [None]
  - DRUG INTERACTION [None]
  - URINARY INCONTINENCE [None]
  - SPEECH DISORDER [None]
  - IMPULSIVE BEHAVIOUR [None]
  - VOMITING PROJECTILE [None]
  - REPETITIVE SPEECH [None]
  - MASTICATION DISORDER [None]
  - MEMORY IMPAIRMENT [None]
  - MOOD ALTERED [None]
  - CORNEAL REFLEX DECREASED [None]
  - DYSKINESIA [None]
  - HYPOREFLEXIA [None]
  - CONDITION AGGRAVATED [None]
  - INFLUENZA [None]
  - EXCESSIVE EYE BLINKING [None]
  - DEPRESSIVE SYMPTOM [None]
  - DYSARTHRIA [None]
  - GASTROOESOPHAGEAL REFLUX DISEASE [None]
  - DYSPNOEA [None]
  - HUNTINGTON'S DISEASE [None]
  - TONGUE DISORDER [None]
  - DIARRHOEA [None]
  - DISEASE PROGRESSION [None]
